FAERS Safety Report 21467554 (Version 2)
Quarter: 2022Q4

REPORT INFORMATION
  Report Type: Report from Study
  Country: CZ (occurrence: CZ)
  Receive Date: 20221017
  Receipt Date: 20221020
  Transmission Date: 20230112
  Serious: Yes (Life-Threatening, Hospitalization, Other)
  Sender: FDA-Public Use
  Company Number: CZ-MYLANLABS-2022M1113598

PATIENT
  Sex: Male

DRUGS (3)
  1. HULIO [Suspect]
     Active Substance: ADALIMUMAB-FKJP
     Indication: Psoriatic arthropathy
     Dosage: 40 MILLIGRAM (BIMONTHLY)
     Route: 058
     Dates: start: 20190502
  2. METHOTREXATE [Concomitant]
     Active Substance: METHOTREXATE
     Dosage: 20 MILLIGRAM, QW
     Route: 065
     Dates: start: 20160101
  3. FOLIC ACID [Concomitant]
     Active Substance: FOLIC ACID
     Dosage: 10 MILLIGRAM, QW
     Route: 065
     Dates: start: 20160101

REACTIONS (3)
  - Respiratory failure [Recovered/Resolved]
  - Pneumonia legionella [Recovered/Resolved]
  - Sepsis [Recovered/Resolved]

NARRATIVE: CASE EVENT DATE: 20220901
